FAERS Safety Report 11236515 (Version 1)
Quarter: 2015Q3

REPORT INFORMATION
  Report Type: Spontaneous
  Country: US (occurrence: US)
  Receive Date: 20150702
  Receipt Date: 20150702
  Transmission Date: 20151125
  Serious: No
  Sender: FDA-Public Use
  Company Number: US-TEVA-574314USA

PATIENT
  Age: 54 Year
  Sex: Female

DRUGS (1)
  1. PROAIR HFA [Suspect]
     Active Substance: ALBUTEROL SULFATE
     Indication: PRODUCT USED FOR UNKNOWN INDICATION
     Route: 055

REACTIONS (8)
  - Face injury [Unknown]
  - Dizziness [Unknown]
  - Lung disorder [Unknown]
  - Hypotension [Unknown]
  - Blood potassium decreased [Unknown]
  - Bronchitis [Unknown]
  - Syncope [Unknown]
  - Arthralgia [Unknown]

NARRATIVE: CASE EVENT DATE: 20150609
